FAERS Safety Report 10243287 (Version 3)
Quarter: 2014Q4

REPORT INFORMATION
  Report Type: Spontaneous
  Country: US (occurrence: None)
  Receive Date: 20140616
  Receipt Date: 20141222
  Transmission Date: 20150528
  Serious: Yes (Hospitalization, Disabling, Other)
  Sender: FDA-Public Use
  Company Number: UNT-2014-000399

PATIENT
  Age: 51 Year
  Sex: Female
  Weight: 85.3 kg

DRUGS (12)
  1. MUCINEX (GUAIFENESIN) [Concomitant]
  2. VENTOLIN HFA [Concomitant]
     Active Substance: ALBUTEROL SULFATE
  3. FUROSEMIDE (FUROSEMIDE) [Concomitant]
     Active Substance: FUROSEMIDE
  4. POTASSIUM CHLORIDE  (POTASSIUM CHLORIDE) [Concomitant]
     Active Substance: POTASSIUM CHLORIDE
  5. PREDNISONE (PREDNISONE) [Concomitant]
     Active Substance: PREDNISONE
  6. TESSALON PERLE I(BENZONATATE) [Concomitant]
  7. ZITHROMAX [Concomitant]
     Active Substance: AZITHROMYCIN DIHYDRATE
  8. TYVASO [Suspect]
     Active Substance: TREPROSTINIL
     Indication: PULMONARY ARTERIAL HYPERTENSION
     Route: 055
     Dates: start: 20120112
  9. PROAIR HFA [Concomitant]
     Active Substance: ALBUTEROL SULFATE
  10. SYMBICORT [Concomitant]
     Active Substance: BUDESONIDE\FORMOTEROL FUMARATE DIHYDRATE
  11. METOPROLOL (METOPROLOL) [Concomitant]
     Active Substance: METOPROLOL
  12. PREDNISONE (PREDNISONE) [Concomitant]
     Active Substance: PREDNISONE

REACTIONS (12)
  - Asthenia [None]
  - Dyspnoea [None]
  - Pulmonary fibrosis [None]
  - Activities of daily living impaired [None]
  - Fluid overload [None]
  - Heart rate increased [None]
  - Pulmonary hypertension [None]
  - Myalgia [None]
  - Right ventricular failure [None]
  - Sinus tachycardia [None]
  - Respiratory failure [None]
  - Fatigue [None]

NARRATIVE: CASE EVENT DATE: 2014
